FAERS Safety Report 8287585-2 (Version None)
Quarter: 2012Q2

REPORT INFORMATION
  Report Type: 
  Country: None (occurrence: None)
  Receive Date: 20120416
  Receipt Date: 20120406
  Transmission Date: 20120825
  Serious: Yes (Other)
  Sender: FDA-Public Use
  Company Number: US-ASTRAZENECA-2012SE22913

PATIENT
  Age: 51 Year
  Sex: Female

DRUGS (2)
  1. CRESTOR [Suspect]
     Route: 048
  2. OTHER MEDICATION [Interacting]
     Route: 065

REACTIONS (3)
  - DRUG INTERACTION [None]
  - BREAST CANCER FEMALE [None]
  - INTENTIONAL DRUG MISUSE [None]
